FAERS Safety Report 13190843 (Version 1)
Quarter: 2017Q1

REPORT INFORMATION
  Report Type: Spontaneous
  Country: FR (occurrence: FR)
  Receive Date: 20170206
  Receipt Date: 20170206
  Transmission Date: 20170428
  Serious: Yes (Death, Hospitalization, Other)
  Sender: FDA-Public Use
  Company Number: FR-BAXTER-2017BAX004017

PATIENT
  Age: 77 Year
  Sex: Female

DRUGS (15)
  1. GLUCOSE A 2.5 % VIAFLO, SOLUTION POUR PERFUSION [Suspect]
     Active Substance: DEXTROSE
     Indication: PRODUCT USED FOR UNKNOWN INDICATION
     Route: 065
     Dates: start: 20160811
  2. CALCIUM GLUCONATE. [Suspect]
     Active Substance: CALCIUM GLUCONATE
     Indication: PRODUCT USED FOR UNKNOWN INDICATION
     Dosage: AMPOULE OF 10 ML, SOLUTION FOR INJECTION
     Route: 042
     Dates: start: 20160811
  3. PHOCYTAN [Suspect]
     Active Substance: .ALPHA.-GLUCOSE-1-PHOSPHATE
     Indication: PRODUCT USED FOR UNKNOWN INDICATION
     Dosage: FORM STRENGTH: 0.66 MMOL/ML, 2 AMPOULES OF PHOCYTAN, AMPOULE OF 10ML
     Route: 065
     Dates: start: 20160811
  4. MAGNESIUM SULFATE. [Suspect]
     Active Substance: MAGNESIUM SULFATE
     Indication: PRODUCT USED FOR UNKNOWN INDICATION
     Dosage: FORM STRENGTH: 1.5 G/10 ML, PROAMP SOLUTION FOR INJECTION IN AMPOULE
     Route: 065
     Dates: start: 20160811
  5. CHLORURE DE SODIUM 0.9% VIAFLO, SOLUTION POUR PERFUSION [Suspect]
     Active Substance: SODIUM CHLORIDE
     Indication: FLUID REPLACEMENT
     Route: 065
     Dates: start: 20160811
  6. CERNEVIT [Suspect]
     Active Substance: VITAMINS
     Indication: VITAMIN SUPPLEMENTATION
     Route: 051
     Dates: start: 20160808, end: 20160810
  7. METHYLPREDNISOLONE. [Suspect]
     Active Substance: METHYLPREDNISOLONE
     Indication: PRODUCT USED FOR UNKNOWN INDICATION
     Route: 065
     Dates: start: 20160805, end: 20160810
  8. CHLORURE DE SODIUM 0.9% VIAFLO, SOLUTION POUR PERFUSION [Suspect]
     Active Substance: SODIUM CHLORIDE
     Route: 065
     Dates: start: 20160811
  9. POTASSIUM CHLORIDE. [Suspect]
     Active Substance: POTASSIUM CHLORIDE
     Indication: PRODUCT USED FOR UNKNOWN INDICATION
     Dosage: AMPOULE OF 10 ML
     Route: 065
     Dates: start: 20160811
  10. ADRENALINE [Suspect]
     Active Substance: EPINEPHRINE
     Indication: CARDIO-RESPIRATORY ARREST
     Dosage: DIRECT IV INJECTION
     Route: 042
     Dates: start: 20160811
  11. CERNEVIT [Suspect]
     Active Substance: VITAMINS
     Dosage: 1 VIAL
     Route: 051
     Dates: start: 20160811
  12. ECOFLAC [Suspect]
     Active Substance: SODIUM CHLORIDE
     Indication: PRODUCT USED FOR UNKNOWN INDICATION
     Route: 065
     Dates: start: 20160811
  13. LASILIX [Suspect]
     Active Substance: FUROSEMIDE
     Indication: PRODUCT USED FOR UNKNOWN INDICATION
     Dosage: FORM STRENGTH: 20 MG/2ML, SINGLE DOSE, SOLUTION FOR INJECTION IN AMPOULE, DIRECT IV INJECTION
     Route: 040
     Dates: start: 20160811, end: 20160811
  14. OXYGEN. [Suspect]
     Active Substance: OXYGEN
     Indication: ADVERSE EVENT
     Dosage: VIA OXYGEN MASK
     Route: 055
     Dates: start: 20160811
  15. ADRENALINE [Suspect]
     Active Substance: EPINEPHRINE
     Dosage: OROTRACHEAL TUBE
     Route: 039
     Dates: start: 20160811

REACTIONS (6)
  - Cardio-respiratory arrest [Recovered/Resolved]
  - Hyperkalaemia [Unknown]
  - Respiratory failure [Unknown]
  - Pulmonary haemorrhage [Fatal]
  - Cardiac arrest [Fatal]
  - Aspiration [Unknown]

NARRATIVE: CASE EVENT DATE: 20160810
